FAERS Safety Report 12352732 (Version 1)
Quarter: 2016Q2

REPORT INFORMATION
  Report Type: Report from Study
  Country: US (occurrence: US)
  Receive Date: 20160510
  Receipt Date: 20160510
  Transmission Date: 20160815
  Serious: Yes (Other)
  Sender: FDA-Public Use
  Company Number: US-JNJFOC-20160504265

PATIENT
  Sex: Female
  Weight: 113.4 kg

DRUGS (3)
  1. METFORMIN [Concomitant]
     Active Substance: METFORMIN HYDROCHLORIDE
     Indication: DIABETES MELLITUS
     Dosage: DISCONTINUED SOMETIMES IN EITHER OCTOBER OR NOVEMBER.
     Route: 065
     Dates: start: 2015, end: 2015
  2. INVOKAMET [Suspect]
     Active Substance: CANAGLIFLOZIN\METFORMIN HYDROCHLORIDE
     Indication: DIABETES MELLITUS
     Route: 048
  3. INVOKANA [Suspect]
     Active Substance: CANAGLIFLOZIN
     Indication: DIABETES MELLITUS
     Dosage: DISCONTINUED SOMETIMES IN EITHER OCTOBER OR NOVEMBER.
     Route: 048
     Dates: start: 2015, end: 2015

REACTIONS (2)
  - Surgery [Unknown]
  - Inappropriate schedule of drug administration [Unknown]
